FAERS Safety Report 4765166-2 (Version None)
Quarter: 2005Q3

REPORT INFORMATION
  Report Type: 
  Country: None (occurrence: None)
  Receive Date: 20050906
  Receipt Date: 20050906
  Transmission Date: 20060218
  Serious: Yes (Hospitalization, Disabling)
  Sender: FDA-Public Use
  Company Number: 376777

PATIENT
  Age: 22 Year
  Sex: Male
  Weight: 107 kg

DRUGS (1)
  1. ACCUTANE [Suspect]
     Indication: ACNE
     Dosage: 40 MG DAILY ORAL
     Route: 048
     Dates: start: 19831201, end: 19840515

REACTIONS (88)
  - ABDOMINAL DISTENSION [None]
  - ABNORMAL FAECES [None]
  - ACCIDENT [None]
  - AGGRESSION [None]
  - ANAEMIA [None]
  - ANXIETY [None]
  - ARTHRALGIA [None]
  - ARTHRITIS [None]
  - ASTHENIA [None]
  - ATELECTASIS [None]
  - BACK PAIN [None]
  - BURNING SENSATION [None]
  - CARDIAC VALVE DISEASE [None]
  - CHEST PAIN [None]
  - COLITIS [None]
  - COLITIS ULCERATIVE [None]
  - CONDITION AGGRAVATED [None]
  - CONDYLOMA ACUMINATUM [None]
  - CONSTIPATION [None]
  - CYST [None]
  - DEFAECATION URGENCY [None]
  - DEPRESSION [None]
  - DIVERTICULITIS [None]
  - DIVERTICULUM [None]
  - DRUG ABUSER [None]
  - DRY SKIN [None]
  - DYSPHONIA [None]
  - DYSURIA [None]
  - EMOTIONAL DISTRESS [None]
  - EPICONDYLITIS [None]
  - ERUCTATION [None]
  - EYE PAIN [None]
  - EYE PRURITUS [None]
  - FAECES DISCOLOURED [None]
  - FAMILY STRESS [None]
  - FATIGUE [None]
  - GASTROINTESTINAL DISORDER [None]
  - GASTROOESOPHAGEAL REFLUX DISEASE [None]
  - HAEMATEMESIS [None]
  - HAEMATOCHEZIA [None]
  - HAEMOPTYSIS [None]
  - HAEMORRHOIDS [None]
  - HALO VISION [None]
  - HEADACHE [None]
  - HEPATIC ENZYME INCREASED [None]
  - HERNIA [None]
  - HUNGER [None]
  - ILEITIS [None]
  - ILEUS [None]
  - IMPAIRED WORK ABILITY [None]
  - INJURY [None]
  - INTESTINAL HAEMORRHAGE [None]
  - IRRITABILITY [None]
  - JOB DISSATISFACTION [None]
  - LEUKOPENIA [None]
  - LIVER DISORDER [None]
  - MEASLES [None]
  - MULTI-ORGAN DISORDER [None]
  - MUMPS [None]
  - MUSCLE SPASMS [None]
  - OEDEMA PERIPHERAL [None]
  - PAIN IN EXTREMITY [None]
  - PANCYTOPENIA [None]
  - PENILE DISCHARGE [None]
  - PENIS DISORDER [None]
  - PNEUMONIA [None]
  - POUCHITIS [None]
  - PROCTALGIA [None]
  - PRURITUS ANI [None]
  - RECTAL HAEMORRHAGE [None]
  - SCIATICA [None]
  - SHOULDER PAIN [None]
  - SINUS BRADYCARDIA [None]
  - SKIN DISORDER [None]
  - SKIN PAPILLOMA [None]
  - SNEEZING [None]
  - STRESS [None]
  - TENDONITIS [None]
  - TENSION [None]
  - TESTICULAR PAIN [None]
  - THROMBOCYTOPENIA [None]
  - VARICELLA [None]
  - VARICOSE VEIN [None]
  - VENOUS INSUFFICIENCY [None]
  - VIRAL INFECTION [None]
  - VISION BLURRED [None]
  - WEIGHT DECREASED [None]
  - WEIGHT INCREASED [None]
